FAERS Safety Report 21030545 (Version 3)
Quarter: 2022Q3

REPORT INFORMATION
  Report Type: Report from Study
  Country: US (occurrence: US)
  Receive Date: 20220701
  Receipt Date: 20220720
  Transmission Date: 20221026
  Serious: Yes (Hospitalization)
  Sender: FDA-Public Use
  Company Number: US-JNJFOC-20220651548

PATIENT
  Age: 19 Year
  Sex: Male
  Weight: 60.4 kg

DRUGS (4)
  1. INFLIXIMAB [Suspect]
     Active Substance: INFLIXIMAB
     Indication: Inflammatory bowel disease
     Route: 041
     Dates: start: 20210707, end: 20211229
  2. HUMIRA [Concomitant]
     Active Substance: ADALIMUMAB
     Dates: start: 20210707
  3. HUMIRA [Concomitant]
     Active Substance: ADALIMUMAB
     Dates: start: 20211229
  4. ESCITALOPRAM [Concomitant]
     Active Substance: ESCITALOPRAM OXALATE

REACTIONS (1)
  - Suicidal ideation [Recovered/Resolved]

NARRATIVE: CASE EVENT DATE: 20220109
